FAERS Safety Report 6492066-2 (Version None)
Quarter: 2009Q4

REPORT INFORMATION
  Report Type: 
  Country: None (occurrence: None)
  Receive Date: 20091125
  Receipt Date: 20090608
  Transmission Date: 20100525
  Serious: Yes (Other)
  Sender: FDA-Public Use
  Company Number: 2009BH009680

PATIENT
  Age: 80 Year
  Sex: Male

DRUGS (20)
  1. DIANEAL [Suspect]
     Indication: PERITONEAL DIALYSIS
     Dosage: 18 L ; EVERY DAY ; IP
     Route: 033
     Dates: start: 20060208
  2. DIANEAL [Suspect]
     Indication: PERITONEAL DIALYSIS
     Dosage: 2.5 L; EVERY DAY; IP
     Route: 033
     Dates: start: 20060208
  3. ALLOPURINOL [Concomitant]
  4. ARANESP [Concomitant]
  5. ASPIRIN [Concomitant]
  6. CEFAZOLIN [Concomitant]
  7. CLONAZEPAM [Concomitant]
  8. DILAUDID [Concomitant]
  9. METOPROLOL TARTRATE [Concomitant]
  10. NEPHROVITE [Concomitant]
  11. NITROGLYCERIN [Concomitant]
  12. PHOSLO [Concomitant]
  13. PRILOSEC [Concomitant]
  14. QUININE SULFATE [Concomitant]
  15. REMERON [Concomitant]
  16. TUMS [Concomitant]
  17. ULTRAM [Concomitant]
  18. VENOFER [Concomitant]
  19. ZOLPIDEM TARTRATE [Concomitant]
  20. VICODIN [Concomitant]

REACTIONS (3)
  - CONSTIPATION [None]
  - MALAISE [None]
  - PERITONITIS BACTERIAL [None]
